FAERS Safety Report 19669735 (Version 3)
Quarter: 2022Q1

REPORT INFORMATION
  Report Type: Report from Study
  Country: IL (occurrence: IL)
  Receive Date: 20210806
  Receipt Date: 20220126
  Transmission Date: 20220423
  Serious: Yes (Other)
  Sender: FDA-Public Use
  Company Number: IL-KOREA IPSEN PHARMA-2019-26299

PATIENT
  Age: 74 Year
  Sex: Female

DRUGS (21)
  1. LANREOTIDE ACETATE [Suspect]
     Active Substance: LANREOTIDE ACETATE
     Indication: Neuroendocrine tumour
     Route: 058
     Dates: start: 20171210, end: 2019
  2. LANREOTIDE ACETATE [Suspect]
     Active Substance: LANREOTIDE ACETATE
     Route: 058
     Dates: end: 2021
  3. LANREOTIDE ACETATE [Suspect]
     Active Substance: LANREOTIDE ACETATE
     Route: 058
     Dates: start: 20210831
  4. OXAZEPAM [Concomitant]
     Active Substance: OXAZEPAM
  5. TOVIAZ [Concomitant]
     Active Substance: FESOTERODINE FUMARATE
  6. BROTIZOLAM-TEVA [Concomitant]
  7. FEXOFENADINE [Concomitant]
     Active Substance: FEXOFENADINE HYDROCHLORIDE
  8. GLUCOMINE [Concomitant]
  9. STATOR [Concomitant]
  10. NEXIUM [Concomitant]
     Active Substance: ESOMEPRAZOLE MAGNESIUM
  11. BISOPROLOL FUMARATE [Concomitant]
     Active Substance: BISOPROLOL FUMARATE
  12. ATACAND [Concomitant]
     Active Substance: CANDESARTAN CILEXETIL
  13. SIMVASTATIN [Concomitant]
     Active Substance: SIMVASTATIN
     Indication: Hyperlipidaemia
  14. ATENOLOL [Concomitant]
     Active Substance: ATENOLOL
     Indication: Hyperlipidaemia
  15. EVISTA [Concomitant]
     Active Substance: RALOXIFENE HYDROCHLORIDE
     Indication: Hyperlipidaemia
  16. CIPROFIBRATE [Concomitant]
     Active Substance: CIPROFIBRATE
     Indication: Hyperlipidaemia
  17. OMEPRAZOLE [Concomitant]
     Active Substance: OMEPRAZOLE
     Indication: Hyperlipidaemia
  18. RAMIPRIL [Concomitant]
     Active Substance: RAMIPRIL
     Indication: Hyperlipidaemia
  19. CIPRALEX [Concomitant]
     Active Substance: ESCITALOPRAM OXALATE
  20. BIMATOPROST\TIMOLOL [Concomitant]
     Active Substance: BIMATOPROST\TIMOLOL
  21. AZARGA [Concomitant]
     Active Substance: BRINZOLAMIDE\TIMOLOL MALEATE

REACTIONS (7)
  - Cholelithiasis [Recovering/Resolving]
  - Biliary colic [Recovering/Resolving]
  - Escherichia sepsis [Recovering/Resolving]
  - Oral fungal infection [Not Recovered/Not Resolved]
  - Body temperature increased [Unknown]
  - Oropharyngeal pain [Unknown]
  - Product dose omission issue [Unknown]

NARRATIVE: CASE EVENT DATE: 20190101
